FAERS Safety Report 5085817-5 (Version None)
Quarter: 2006Q3

REPORT INFORMATION
  Report Type: 
  Country: None (occurrence: None)
  Receive Date: 20060822
  Receipt Date: 20060628
  Transmission Date: 20061208
  Serious: Yes (Hospitalization, Other)
  Sender: FDA-Public Use
  Company Number: 2006AP03008

PATIENT
  Age: 22 Year
  Sex: Female
  Weight: 44.8 kg

DRUGS (7)
  1. FOSCAVIR [Suspect]
     Indication: HUMAN HERPESVIRUS 6 INFECTION
     Route: 042
     Dates: start: 20060616, end: 20060626
  2. PROGRAF [Suspect]
     Indication: IMMUNOSUPPRESSION
     Route: 041
     Dates: start: 20060522, end: 20060616
  3. PROGRAF [Suspect]
     Route: 048
     Dates: start: 20060617, end: 20060621
  4. PROGRAF [Suspect]
     Route: 041
     Dates: start: 20060621
  5. ITRIZOLE [Concomitant]
     Indication: FUNGAL INFECTION
     Route: 048
     Dates: start: 20060610
  6. ZOVIRAX [Concomitant]
     Indication: LOCAL ANTIVIRAL TREATMENT
     Route: 048
     Dates: start: 20060519
  7. NEUTROGIN [Concomitant]
     Indication: NEUTROPENIA
     Route: 042
     Dates: start: 20060524, end: 20060618

REACTIONS (4)
  - HYPOKALAEMIA [None]
  - PYREXIA [None]
  - RENAL IMPAIRMENT [None]
  - TONGUE PARALYSIS [None]
